FAERS Safety Report 4625511-5 (Version None)
Quarter: 2005Q2

REPORT INFORMATION
  Report Type: 
  Country: None (occurrence: None)
  Receive Date: 20050401
  Receipt Date: 20050323
  Transmission Date: 20051028
  Serious: Yes (Life-Threatening, Hospitalization)
  Sender: FDA-Public Use
  Company Number: US-ABBOTT-05P-163-0295157-00

PATIENT
  Age: 17 Year
  Sex: Male

DRUGS (3)
  1. DIVALPROEX SODIUM [Suspect]
     Indication: PSYCHOMOTOR HYPERACTIVITY
     Route: 048
  2. DIVALPROEX SODIUM [Suspect]
     Indication: MANIA
  3. OLANZAPINE [Suspect]
     Indication: PSYCHIATRIC SYMPTOM
     Dosage: 2.5MG BID, 5MG QHS
     Route: 048

REACTIONS (14)
  - BLOOD PRESSURE INCREASED [None]
  - CATATONIA [None]
  - DELUSION [None]
  - DEPRESSED LEVEL OF CONSCIOUSNESS [None]
  - ELECTROENCEPHALOGRAM ABNORMAL [None]
  - HEART RATE INCREASED [None]
  - HYPERVIGILANCE [None]
  - MUSCLE RIGIDITY [None]
  - MUTISM [None]
  - NEUROLEPTIC MALIGNANT SYNDROME [None]
  - PSYCHOMOTOR RETARDATION [None]
  - PSYCHOMOTOR SKILLS IMPAIRED [None]
  - RHABDOMYOLYSIS [None]
  - WAXY FLEXIBILITY [None]
